FAERS Safety Report 16831884 (Version 6)
Quarter: 2019Q4

REPORT INFORMATION
  Report Type: Spontaneous
  Country: US (occurrence: US)
  Receive Date: 20190920
  Receipt Date: 20191223
  Transmission Date: 20200122
  Serious: Yes (Other)
  Sender: FDA-Public Use
  Company Number: US-CORCEPT THERAPEUTICS INC.-US-2019CRT000230

PATIENT
  Age: 52 Year
  Sex: Female
  Weight: 85.71 kg

DRUGS (30)
  1. NORTRIPTYLINE [Suspect]
     Active Substance: NORTRIPTYLINE
     Indication: PRODUCT USED FOR UNKNOWN INDICATION
     Dosage: UNK
  2. AMLODIPINE [Concomitant]
     Active Substance: AMLODIPINE BESYLATE
     Dosage: 2.5 MG, BID
     Dates: start: 20190307
  3. ATORVASTATIN [Concomitant]
     Active Substance: ATORVASTATIN
     Dosage: 40 MG, QD
     Route: 065
     Dates: start: 201906
  4. VITAMIN B12 [Concomitant]
     Active Substance: CYANOCOBALAMIN
     Indication: PRODUCT USED FOR UNKNOWN INDICATION
     Dosage: UNK
  5. KORLYM [Suspect]
     Active Substance: MIFEPRISTONE
     Dosage: 300 MG, QD
     Route: 048
     Dates: start: 201903, end: 20190428
  6. KORLYM [Suspect]
     Active Substance: MIFEPRISTONE
     Dosage: 300 MG, QOD
     Route: 048
     Dates: start: 20190429, end: 20190602
  7. KORLYM [Suspect]
     Active Substance: MIFEPRISTONE
     Dosage: 300 MG, QD
     Route: 048
     Dates: start: 20191107, end: 20191211
  8. KORLYM [Suspect]
     Active Substance: MIFEPRISTONE
     Dosage: 600 MG, QD
     Route: 048
     Dates: start: 20191212
  9. METOPROLOL. [Suspect]
     Active Substance: METOPROLOL
     Dosage: 37.5 MG, QD
  10. AMLODIPINE [Concomitant]
     Active Substance: AMLODIPINE BESYLATE
     Indication: PRODUCT USED FOR UNKNOWN INDICATION
     Dosage: UNK
     Dates: end: 20190306
  11. ARMOUR THYROID [Concomitant]
     Active Substance: THYROID, PORCINE
     Dosage: 30 MG, QD
     Dates: start: 20190327
  12. VITAMIN E                          /00110501/ [Concomitant]
     Active Substance: TOCOPHEROL
     Indication: PRODUCT USED FOR UNKNOWN INDICATION
     Dosage: UNK
  13. KORLYM [Suspect]
     Active Substance: MIFEPRISTONE
     Dosage: 300 MG, UNK
     Route: 048
     Dates: start: 20190307, end: 201903
  14. LIPITOR [Suspect]
     Active Substance: ATORVASTATIN CALCIUM
     Indication: PRODUCT USED FOR UNKNOWN INDICATION
     Dosage: UNK
  15. LIPITOR [Suspect]
     Active Substance: ATORVASTATIN CALCIUM
     Dosage: 20 MG, UNK
     Dates: start: 20190327
  16. KORLYM [Suspect]
     Active Substance: MIFEPRISTONE
     Dosage: 900 MG, QD
     Route: 048
     Dates: start: 20190903, end: 2019
  17. METOPROLOL. [Suspect]
     Active Substance: METOPROLOL
     Indication: HEART RATE INCREASED
     Dosage: 50 MG, QD
     Route: 065
  18. ARMOUR THYROID [Concomitant]
     Active Substance: THYROID, PORCINE
     Dosage: ALTERNATING DAYS OF 60 MCG AND 90 MCG
  19. KORLYM [Suspect]
     Active Substance: MIFEPRISTONE
     Dosage: 600 MG, QD
     Route: 048
     Dates: start: 20190603, end: 20190902
  20. FAMOTIDINE. [Concomitant]
     Active Substance: FAMOTIDINE
     Indication: PRODUCT USED FOR UNKNOWN INDICATION
     Dosage: UNK
  21. ARMOUR THYROID [Concomitant]
     Active Substance: THYROID, PORCINE
     Dosage: 60 MG, QD
     Route: 065
     Dates: start: 201906
  22. KORLYM [Suspect]
     Active Substance: MIFEPRISTONE
     Indication: CUSHING^S SYNDROME
     Dosage: 300 MG, QD
     Route: 048
     Dates: start: 20190219, end: 20190223
  23. KORLYM [Suspect]
     Active Substance: MIFEPRISTONE
     Dosage: 600 MG, QOD (ALTERNATING DAYS)
     Route: 048
     Dates: start: 20190429, end: 20190602
  24. OMEPRAZOLE. [Suspect]
     Active Substance: OMEPRAZOLE
     Indication: ABDOMINAL DISCOMFORT
  25. TRADJENTA [Concomitant]
     Active Substance: LINAGLIPTIN
     Indication: PRODUCT USED FOR UNKNOWN INDICATION
     Dosage: UNK
  26. LOSARTAN AND HYDROCHLOROTHIAZIDE [Concomitant]
     Active Substance: HYDROCHLOROTHIAZIDE\LOSARTAN POTASSIUM
     Indication: PRODUCT USED FOR UNKNOWN INDICATION
     Dosage: UNK
  27. ARMOUR THYROID [Concomitant]
     Active Substance: THYROID, PORCINE
     Indication: PRODUCT USED FOR UNKNOWN INDICATION
     Dosage: UNK
  28. KORLYM [Suspect]
     Active Substance: MIFEPRISTONE
     Dosage: 1/2 TABLET
     Route: 048
     Dates: start: 20190224, end: 20190306
  29. LINZESS [Concomitant]
     Active Substance: LINACLOTIDE
     Indication: PRODUCT USED FOR UNKNOWN INDICATION
     Dosage: UNK
  30. ATORVASTATIN [Concomitant]
     Active Substance: ATORVASTATIN
     Indication: PRODUCT USED FOR UNKNOWN INDICATION
     Dosage: UNK

REACTIONS (57)
  - Abdominal distension [Unknown]
  - Fear [Unknown]
  - Low density lipoprotein increased [Unknown]
  - Neck pain [Not Recovered/Not Resolved]
  - Blood glucose decreased [Recovering/Resolving]
  - Anxiety [Recovered/Resolved]
  - Asthenia [Unknown]
  - Feeling cold [Not Recovered/Not Resolved]
  - Mood swings [Unknown]
  - Skin discolouration [Recovering/Resolving]
  - Dry skin [Unknown]
  - Abdominal pain upper [Recovered/Resolved]
  - Dizziness [Recovered/Resolved]
  - Headache [Recovering/Resolving]
  - High density lipoprotein decreased [Unknown]
  - Knee operation [Unknown]
  - Spinal operation [Unknown]
  - Hypertrichosis [Recovering/Resolving]
  - Accident [Unknown]
  - Dyspnoea [Unknown]
  - Cortisol increased [Unknown]
  - Decreased appetite [Recovering/Resolving]
  - Pain in extremity [Unknown]
  - Hypertension [Unknown]
  - Heart rate increased [Recovering/Resolving]
  - Blood cholesterol increased [Unknown]
  - Nightmare [Unknown]
  - Hepatic steatosis [Not Recovered/Not Resolved]
  - Irritable bowel syndrome [Recovering/Resolving]
  - Fatigue [Unknown]
  - Arthralgia [Recovering/Resolving]
  - Blood triglycerides increased [Unknown]
  - Constipation [Unknown]
  - Alanine aminotransferase increased [Recovering/Resolving]
  - Aspartate aminotransferase increased [Recovering/Resolving]
  - Wrong technique in product usage process [Recovered/Resolved]
  - Thyroxine increased [Unknown]
  - Blood thyroid stimulating hormone increased [Unknown]
  - Malaise [Unknown]
  - Diarrhoea [Unknown]
  - Incorrect dose administered [Recovered/Resolved]
  - Nervousness [Unknown]
  - Ingrown hair [Unknown]
  - Nerve compression [Unknown]
  - Tremor [Unknown]
  - Hormone level abnormal [Unknown]
  - Nausea [Recovered/Resolved]
  - Gastrooesophageal reflux disease [Not Recovered/Not Resolved]
  - Weight increased [Unknown]
  - Hypoaesthesia [Unknown]
  - Myalgia [Recovering/Resolving]
  - Insomnia [Not Recovered/Not Resolved]
  - Flatulence [Recovering/Resolving]
  - Hyperhidrosis [Recovered/Resolved]
  - Alopecia [Unknown]
  - Antibody test abnormal [Unknown]
  - Peripheral swelling [Recovered/Resolved]

NARRATIVE: CASE EVENT DATE: 2019
